FAERS Safety Report 9813426 (Version 1)
Quarter: 2014Q1

REPORT INFORMATION
  Report Type: Spontaneous
  Country: US (occurrence: None)
  Receive Date: 20140109
  Receipt Date: 20140109
  Transmission Date: 20141002
  Serious: Yes (Hospitalization)
  Sender: FDA-Public Use
  Company Number: 2115212

PATIENT
  Sex: 0

DRUGS (1)
  1. BUPIVACAINE HCL [Suspect]
     Indication: PRODUCT USED FOR UNKNOWN INDICATION
     Dosage: NOT REPORTED, NOT REPORTED, INJECTION
     Dates: start: 20131029

REACTIONS (2)
  - Unevaluable event [None]
  - Pain [None]
